FAERS Safety Report 5074449-0 (Version None)
Quarter: 2006Q3

REPORT INFORMATION
  Report Type: 
  Country: None (occurrence: None)
  Receive Date: 20060803
  Receipt Date: 20060726
  Transmission Date: 20061208
  Serious: Yes (Hospitalization, Other)
  Sender: FDA-Public Use
  Company Number: HQWYE561105JUL06

PATIENT
  Age: 44 Year
  Sex: Male

DRUGS (8)
  1. SIROLIMUS (SIROLIMUS, TABLET) [Suspect]
     Indication: PROPHYLAXIS AGAINST TRANSPLANT REJECTION
     Dosage: 7 DAILY
     Dates: start: 20051121, end: 20060101
  2. SIROLIMUS (SIROLIMUS, TABLET) [Suspect]
     Indication: PROPHYLAXIS AGAINST TRANSPLANT REJECTION
     Dosage: 7 DAILY
     Dates: start: 20060101, end: 20060709
  3. TACROLIMUS (TACROLIMUS) [Concomitant]
  4. CELLCEPT [Concomitant]
  5. SEPTRA [Concomitant]
  6. COZAAR [Concomitant]
  7. ATORVASTATIN CALCIUM [Concomitant]
  8. ZETIA [Concomitant]

REACTIONS (2)
  - ABDOMINAL HERNIA [None]
  - POST PROCEDURAL COMPLICATION [None]
